FAERS Safety Report 9759728 (Version 1)
Quarter: 2013Q4

REPORT INFORMATION
  Report Type: Spontaneous
  Country: US (occurrence: US)
  Receive Date: 20131216
  Receipt Date: 20131216
  Transmission Date: 20140711
  Serious: No
  Sender: FDA-Public Use
  Company Number: US-ABBVIE-13P-163-1082229-00

PATIENT
  Age: 57 Year
  Sex: Male
  Weight: 108.96 kg

DRUGS (4)
  1. TRILIPIX [Suspect]
     Indication: BLOOD CHOLESTEROL INCREASED
     Dates: start: 20130101, end: 20130315
  2. COUMADIN [Concomitant]
     Indication: THROMBOSIS PROPHYLAXIS
  3. DIOVAN HCT [Concomitant]
     Indication: HYPERTENSION
  4. ATENOLOL [Concomitant]
     Indication: ATRIAL FIBRILLATION

REACTIONS (4)
  - Product lot number issue [Unknown]
  - Musculoskeletal chest pain [Recovered/Resolved]
  - Myalgia [Recovering/Resolving]
  - Muscle spasms [Recovering/Resolving]
